FAERS Safety Report 21518959 (Version 2)
Quarter: 2022Q4

REPORT INFORMATION
  Report Type: Spontaneous
  Country: FR (occurrence: FR)
  Receive Date: 20221028
  Receipt Date: 20221104
  Transmission Date: 20230113
  Serious: Yes (Hospitalization, Other)
  Sender: FDA-Public Use
  Company Number: FR-NOVARTISPH-NVSC2022FR237593

PATIENT
  Age: 34 Year
  Sex: Female
  Weight: 70 kg

DRUGS (10)
  1. TACROLIMUS [Suspect]
     Active Substance: TACROLIMUS
     Indication: Renal transplant
     Dosage: 10 MG, QD
     Route: 048
     Dates: start: 20170612
  2. AZATHIOPRINE SODIUM [Concomitant]
     Active Substance: AZATHIOPRINE SODIUM
     Indication: Immunosuppression
     Dosage: 100 UNKNOWN UNIT, TOTAL DAILY DOSE
     Route: 065
     Dates: start: 20160219
  3. PREDNISONE [Concomitant]
     Active Substance: PREDNISONE
     Indication: Immunosuppression
     Dosage: 27 UNKNOWN UNIT, TOTAL DAILY DOSE
     Route: 065
     Dates: start: 20191029, end: 20191101
  4. PREDNISONE [Concomitant]
     Active Substance: PREDNISONE
     Dosage: 21 UNKNOWN UNIT, TOTAL DAILY DOSE
     Route: 065
     Dates: start: 20191102, end: 20191107
  5. PREDNISONE [Concomitant]
     Active Substance: PREDNISONE
     Dosage: 13 UNKNOWN UNIT, TOTAL DAILY DOSE
     Route: 065
     Dates: start: 20191108, end: 20191117
  6. PREDNISONE [Concomitant]
     Active Substance: PREDNISONE
     Dosage: 11 UNKNOWN UNIT, TOTAL DAILY DOSE
     Route: 065
     Dates: start: 20191118, end: 20191124
  7. PREDNISONE [Concomitant]
     Active Substance: PREDNISONE
     Dosage: 9 UNKNOWN UNIT, TOTAL DAILY DOSE
     Route: 065
     Dates: start: 20191125, end: 20191201
  8. PREDNISONE [Concomitant]
     Active Substance: PREDNISONE
     Dosage: 7 UNKNOWN UNIT, TOTAL DAILY DOSE
     Route: 065
     Dates: start: 20191202, end: 20191208
  9. PREDNISONE [Concomitant]
     Active Substance: PREDNISONE
     Dosage: 5 UNKNOWN UNIT, TOTAL DAILY DOSE
     Route: 065
     Dates: start: 20191209
  10. METHYLPREDNISOLONE [Concomitant]
     Active Substance: METHYLPREDNISOLONE
     Indication: Kidney transplant rejection
     Dosage: 265 UNKNOWN UNIT, TOTAL DAILY DOSE
     Route: 065
     Dates: start: 20191026, end: 20191029

REACTIONS (1)
  - Pyelonephritis [Recovered/Resolved]

NARRATIVE: CASE EVENT DATE: 20220203
